FAERS Safety Report 4855676-1 (Version None)
Quarter: 2005Q4

REPORT INFORMATION
  Report Type: 
  Country: None (occurrence: None)
  Receive Date: 20051216
  Receipt Date: 20050419
  Transmission Date: 20060501
  Serious: Yes (Other)
  Sender: FDA-Public Use
  Company Number: PHNR2005AU00789

PATIENT
  Age: 57 Year
  Sex: Male

DRUGS (11)
  1. DEXAMETHASONE [Concomitant]
  2. METHOTREXATE [Concomitant]
  3. WARFARIN [Concomitant]
  4. FOLIC ACID [Concomitant]
  5. RANITIDINE [Concomitant]
  6. METFORMIN [Concomitant]
  7. HYDROXYCHLOROQUINE SULFATE [Concomitant]
  8. VERAPAMIL [Concomitant]
  9. SERTRALINE HCL [Concomitant]
  10. MORPHINE [Concomitant]
  11. AREDIA [Suspect]
     Indication: MULTIPLE MYELOMA
     Dosage: 90 MG MONTHLY
     Route: 042

REACTIONS (9)
  - BONE DEBRIDEMENT [None]
  - BONE DISORDER [None]
  - FISTULA [None]
  - GASTROSTOMY TUBE INSERTION [None]
  - HYPERBARIC OXYGEN THERAPY [None]
  - OSTECTOMY [None]
  - OSTEONECROSIS [None]
  - PAIN IN JAW [None]
  - TOOTH EXTRACTION [None]
